FAERS Safety Report 6810311-8 (Version None)
Quarter: 2010Q2

REPORT INFORMATION
  Report Type: 
  Country: None (occurrence: None)
  Receive Date: 20100630
  Receipt Date: 20100623
  Transmission Date: 20101027
  Serious: Yes (Hospitalization)
  Sender: FDA-Public Use
  Company Number: US-WYE-H15855110

PATIENT
  Sex: Female
  Weight: 54.48 kg

DRUGS (7)
  1. CORDARONE [Suspect]
     Indication: ATRIAL FIBRILLATION
     Route: 065
  2. CORDARONE [Suspect]
     Route: 065
  3. CORDARONE [Suspect]
     Dosage: IN MAR-2010; DOSE 200 MG ONCE A DAY (STOPPED DATE: 2010)
     Route: 065
  4. CORDARONE [Suspect]
     Dosage: IN JUN-2010: DOSE ALTERNATING BETWEEN 200MG AND 100 MG DAILY
     Route: 065
  5. LOPRESSOR [Concomitant]
     Indication: CARDIAC DISORDER
     Dosage: 12.5 MG ONE OR TWO DAILY
     Route: 065
     Dates: end: 20090101
  6. LOPRESSOR [Concomitant]
     Route: 065
     Dates: start: 20100301, end: 20100317
  7. LASIX [Concomitant]
     Route: 065

REACTIONS (3)
  - ATRIAL FLUTTER [None]
  - DRUG EFFECT DECREASED [None]
  - HYPOTHYROIDISM [None]
